FAERS Safety Report 15540766 (Version 2)
Quarter: 2019Q2

REPORT INFORMATION
  Report Type: Spontaneous
  Country: JP (occurrence: JP)
  Receive Date: 20181023
  Receipt Date: 20190605
  Transmission Date: 20190711
  Serious: Yes (Hospitalization)
  Sender: FDA-Public Use
  Company Number: JP-MYLANLABS-2018M1076148

PATIENT
  Age: 41 Year
  Sex: Female

DRUGS (19)
  1. PREDNISOLONE. [Suspect]
     Active Substance: PREDNISOLONE
     Indication: RHEUMATOID VASCULITIS
     Dosage: 8 MILLIGRAM
     Route: 048
     Dates: start: 20160222
  2. PREDNISOLONE. [Suspect]
     Active Substance: PREDNISOLONE
     Dosage: 17.5 MILLIGRAM
     Route: 048
     Dates: start: 20180205, end: 20180218
  3. XELJANZ [Concomitant]
     Active Substance: TOFACITINIB CITRATE
     Dosage: 10 MG, UNK
     Route: 048
     Dates: start: 20160404, end: 20171129
  4. METHOTREXATE. [Concomitant]
     Active Substance: METHOTREXATE
     Indication: RHEUMATOID VASCULITIS
     Dosage: 8 MG, UNK
     Route: 048
     Dates: start: 20160222
  5. METHOTREXATE. [Concomitant]
     Active Substance: METHOTREXATE
     Dosage: 14 MG, UNK
     Route: 048
     Dates: end: 20170305
  6. PREDNISOLONE. [Suspect]
     Active Substance: PREDNISOLONE
     Dosage: 6.5 MILLIGRAM
     Route: 048
     Dates: end: 20170430
  7. XELJANZ [Concomitant]
     Active Substance: TOFACITINIB CITRATE
     Indication: RHEUMATOID VASCULITIS
     Dosage: 5 MG, UNK
     Route: 048
     Dates: start: 20160222
  8. METHOTREXATE. [Concomitant]
     Active Substance: METHOTREXATE
     Dosage: 16 MG, UNK
     Route: 048
     Dates: start: 20180514
  9. BAKTAR [Concomitant]
     Active Substance: SULFAMETHOXAZOLE\TRIMETHOPRIM
     Indication: INFECTION PROPHYLAXIS
     Route: 065
  10. PREDNISOLONE. [Suspect]
     Active Substance: PREDNISOLONE
     Dosage: 60 MILLIGRAM
     Route: 048
     Dates: start: 20171130, end: 20171213
  11. METHOTREXATE. [Concomitant]
     Active Substance: METHOTREXATE
     Dosage: 15 MG, UNK
     Route: 048
     Dates: start: 20170306, end: 20170402
  12. PREDNISOLONE. [Suspect]
     Active Substance: PREDNISOLONE
     Dosage: 25 MILLIGRAM
     Route: 048
     Dates: start: 20180110, end: 20180121
  13. PREDNISOLONE. [Suspect]
     Active Substance: PREDNISOLONE
     Dosage: 6 MILLIGRAM
     Route: 048
     Dates: start: 20170501, end: 20171129
  14. PREDNISOLONE. [Suspect]
     Active Substance: PREDNISOLONE
     Dosage: 45 MILLIGRAM
     Route: 048
     Dates: start: 20171214, end: 20171214
  15. PREDNISOLONE. [Suspect]
     Active Substance: PREDNISOLONE
     Dosage: 20 MILLIGRAM
     Route: 048
     Dates: start: 20180122, end: 20180204
  16. PREDNISOLONE. [Suspect]
     Active Substance: PREDNISOLONE
     Dosage: 30 MILLIGRAM
     Route: 048
     Dates: start: 20171215, end: 20180109
  17. PREDNISOLONE. [Suspect]
     Active Substance: PREDNISOLONE
     Dosage: 15 MILLIGRAM
     Route: 048
     Dates: start: 20180219
  18. XELJANZ [Concomitant]
     Active Substance: TOFACITINIB CITRATE
     Dosage: 10 MG, UNK
     Route: 048
     Dates: start: 20180514
  19. METHOTREXATE. [Concomitant]
     Active Substance: METHOTREXATE
     Dosage: 16 MG, UNK
     Route: 048
     Dates: start: 20170403, end: 20171129

REACTIONS (3)
  - Skin ulcer [Recovered/Resolved]
  - Rheumatoid vasculitis [Recovered/Resolved]
  - Condition aggravated [Recovered/Resolved]

NARRATIVE: CASE EVENT DATE: 201609
